FAERS Safety Report 7111395 (Version 2)
Quarter: 2019Q2

REPORT INFORMATION
  Report Type: Spontaneous
  Country: US (occurrence: US)
  Receive Date: 20090911
  Receipt Date: 20190401
  Transmission Date: 20190711
  Serious: Yes (Other)
  Sender: FDA-Public Use
  Company Number: US-ELI_LILLY_AND_COMPANY-US200909000169

PATIENT
  Sex: Female

DRUGS (20)
  1. VITAMIN B12 [Concomitant]
     Active Substance: CYANOCOBALAMIN
     Dosage: 1 ML, 2/W
  2. ESTRIEL [ESTRIOL] [Concomitant]
     Dosage: UNK, UNKNOWN
  3. FENTANYL. [Concomitant]
     Active Substance: FENTANYL
     Dosage: UNK, UNKNOWN
  4. OXYCODONE [Concomitant]
     Active Substance: OXYCODONE
     Dosage: UNK, AS NEEDED
  5. MELATONIN [Concomitant]
     Active Substance: MELATONIN
     Dosage: UNK, UNKNOWN
  6. HYDROCHLOROTHIAZIDE. [Concomitant]
     Active Substance: HYDROCHLOROTHIAZIDE
     Dosage: UNK, UNKNOWN
  7. DHEA [Concomitant]
     Active Substance: PRASTERONE
     Dosage: UNK, UNKNOWN
  8. PROVIGIL [Concomitant]
     Active Substance: MODAFINIL
     Dosage: UNK, UNKNOWN
  9. ESTRADIOL. [Concomitant]
     Active Substance: ESTRADIOL
     Dosage: UNK, UNKNOWN
  10. PROGESTERONE. [Concomitant]
     Active Substance: PROGESTERONE
     Dosage: UNK, UNKNOWN
  11. HUMATROPE [Suspect]
     Active Substance: SOMATROPIN
     Indication: CEREBROVASCULAR ACCIDENT
     Dosage: 0.3 MG, UNK
     Dates: start: 200905, end: 20090828
  12. PREGNENOLONE [Concomitant]
     Active Substance: PREGNENOLONE
     Dosage: UNK, UNKNOWN
  13. CYMBALTA [Concomitant]
     Active Substance: DULOXETINE HYDROCHLORIDE
     Dosage: UNK, UNKNOWN
     Dates: start: 2008
  14. CORTEF [HYDROCORTISONE] [Concomitant]
     Dosage: UNK, UNKNOWN
  15. LASIX [Concomitant]
     Active Substance: FUROSEMIDE
     Dosage: UNK, UNKNOWN
  16. DIAZEPAM. [Concomitant]
     Active Substance: DIAZEPAM
     Dosage: UNK, UNKNOWN
  17. TYLENOL [Concomitant]
     Active Substance: ACETAMINOPHEN
     Dosage: UNK, AS NEEDED
  18. HUMATROPE [Suspect]
     Active Substance: SOMATROPIN
     Dosage: UNK, UNKNOWN
     Dates: start: 20090831
  19. ARMOUR THYROID [Concomitant]
     Active Substance: THYROID, PORCINE
     Dosage: UNK, UNKNOWN
  20. KLOR-CON M10 [Concomitant]
     Active Substance: POTASSIUM CHLORIDE
     Dosage: UNK, UNKNOWN

REACTIONS (9)
  - Ascites [Recovering/Resolving]
  - Generalised oedema [Recovering/Resolving]
  - Arthralgia [Recovered/Resolved]
  - Swelling [Recovering/Resolving]
  - Myalgia [Recovered/Resolved]
  - Incorrect dose administered [Unknown]
  - Product preparation issue [Unknown]
  - Oedema peripheral [Recovering/Resolving]
  - Headache [Recovering/Resolving]

NARRATIVE: CASE EVENT DATE: 200905
